FAERS Safety Report 9898064 (Version 2)
Quarter: 2014Q1

REPORT INFORMATION
  Report Type: Spontaneous
  Country: US (occurrence: US)
  Receive Date: 20140214
  Receipt Date: 20140303
  Transmission Date: 20141002
  Serious: Yes (Life-Threatening)
  Sender: FDA-Public Use
  Company Number: US-B.I. PHARMACEUTICALS,INC./RIDGEFIELD-2014-BI-06587BP

PATIENT
  Age: 47 Year
  Sex: Female
  Weight: 182 kg

DRUGS (19)
  1. TRADJENTA [Suspect]
     Indication: TYPE 2 DIABETES MELLITUS
     Dosage: 5 MG
     Route: 048
     Dates: start: 20130911, end: 20140211
  2. CHONDROTIN [Concomitant]
     Indication: OSTEOARTHRITIS
     Route: 065
  3. OMEPRAZOLE [Concomitant]
     Indication: GASTROOESOPHAGEAL REFLUX DISEASE
     Dosage: 40 MG
     Route: 048
  4. GLUCOSAMINE [Concomitant]
     Indication: OSTEOARTHRITIS
     Route: 065
  5. LAMICTAL 200MG [Concomitant]
     Indication: BIPOLAR DISORDER
     Dosage: 800 MG
     Route: 048
  6. AMBIEN 5 MG [Concomitant]
     Indication: INSOMNIA
     Dosage: 5 MG
     Route: 048
  7. ALBUTEROL [Concomitant]
     Indication: ASTHMA
     Route: 065
  8. LISINOPRIL [Concomitant]
     Indication: HYPERTENSION
     Dosage: 10 MG
     Route: 048
  9. SIMVASTATIN [Concomitant]
     Indication: HYPERLIPIDAEMIA
     Dosage: 40 MG
     Route: 048
  10. LACTOBACILLUS [Concomitant]
     Route: 065
  11. VITAMIN D3 [Concomitant]
     Route: 065
  12. SYNTHROID 75MG [Concomitant]
     Indication: HYPOTHYROIDISM
     Dosage: 75 MCG
     Route: 048
  13. IMODIUM [Concomitant]
     Dosage: 2 MG
     Route: 048
  14. NEURONTIN 100 MG [Concomitant]
     Route: 065
  15. PRINIVIL 10 MG [Concomitant]
     Route: 065
  16. PRILOSEC 40 MG [Concomitant]
     Route: 065
  17. REQUIP 4M [Concomitant]
     Dosage: DOSE PER APPLICATION: 4M
     Route: 065
  18. ZOCOR 40 MG [Concomitant]
     Route: 065
  19. VIBRYA 40MG [Concomitant]
     Route: 065

REACTIONS (2)
  - Suicide attempt [Not Recovered/Not Resolved]
  - Depression [Not Recovered/Not Resolved]
